FAERS Safety Report 26009772 (Version 1)
Quarter: 2025Q4

REPORT INFORMATION
  Report Type: Spontaneous
  Country: US (occurrence: US)
  Receive Date: 20251107
  Receipt Date: 20251107
  Transmission Date: 20260118
  Serious: No
  Sender: TEVA
  Company Number: US-TEVA-VS-3386330

PATIENT
  Age: 88 Year

DRUGS (1)
  1. BUDESONIDE [Suspect]
     Active Substance: BUDESONIDE
     Indication: Chronic obstructive pulmonary disease
     Dosage: 0.5/2MG/ML
     Route: 055
     Dates: start: 2024

REACTIONS (8)
  - Myalgia [Unknown]
  - Product use issue [Unknown]
  - Product prescribing issue [Unknown]
  - Vision blurred [Unknown]
  - Oropharyngeal pain [Unknown]
  - Visual impairment [Unknown]
  - Loss of personal independence in daily activities [Unknown]
  - Product use in unapproved indication [Unknown]

NARRATIVE: CASE EVENT DATE: 20240101
